FAERS Safety Report 9215297 (Version 1)
Quarter: 2013Q2

REPORT INFORMATION
  Report Type: Spontaneous
  Country: EC (occurrence: EC)
  Receive Date: 20130405
  Receipt Date: 20130405
  Transmission Date: 20140414
  Serious: Yes (Hospitalization)
  Sender: FDA-Public Use
  Company Number: EC-GLAXOSMITHKLINE-A1018875A

PATIENT
  Age: 25 Year
  Sex: Female

DRUGS (3)
  1. LAMICTAL [Suspect]
     Indication: EPILEPSY
     Dosage: 100MG PER DAY
     Route: 048
     Dates: start: 20130326, end: 20130327
  2. VALPROIC ACID [Concomitant]
     Indication: EPILEPSY
  3. CARBAMAZEPINE [Concomitant]
     Indication: EPILEPSY

REACTIONS (10)
  - Anaphylactic reaction [Recovering/Resolving]
  - Depressed level of consciousness [Recovering/Resolving]
  - Oedema [Recovering/Resolving]
  - Headache [Recovered/Resolved]
  - Erythema [Recovering/Resolving]
  - Face oedema [Not Recovered/Not Resolved]
  - Pyrexia [Recovered/Resolved]
  - Leukocytosis [Recovering/Resolving]
  - Lethargy [Recovering/Resolving]
  - Drug prescribing error [Unknown]
